FAERS Safety Report 23189408 (Version 2)
Quarter: 2023Q4

REPORT INFORMATION
  Report Type: Report from Study
  Country: CN (occurrence: CN)
  Receive Date: 20231116
  Receipt Date: 20231204
  Transmission Date: 20240110
  Serious: Yes (Hospitalization)
  Sender: FDA-Public Use
  Company Number: US-COHERUS BIOSCIENCES INC - 2022-COH-CN000057

PATIENT

DRUGS (33)
  1. TORIPALIMAB [Suspect]
     Active Substance: TORIPALIMAB
     Indication: Endometrial cancer
     Dosage: 240 MG, Q3WEEKS, C1D1
     Route: 041
     Dates: start: 20220318, end: 20220905
  2. TORIPALIMAB [Suspect]
     Active Substance: TORIPALIMAB
     Dosage: 240 MG, Q3WEEKS, C13 VISIT
     Route: 041
     Dates: start: 20221124, end: 20221124
  3. TORIPALIMAB [Suspect]
     Active Substance: TORIPALIMAB
     Dosage: 240 MG, Q3WEEKS
     Route: 041
     Dates: start: 20221215, end: 20221215
  4. TORIPALIMAB [Suspect]
     Active Substance: TORIPALIMAB
     Dosage: 240 MG, Q3WEEKS
     Route: 041
     Dates: start: 20230116, end: 20230116
  5. TORIPALIMAB [Suspect]
     Active Substance: TORIPALIMAB
     Dosage: 240 MG, Q3WEEKS
     Route: 041
     Dates: start: 20230207, end: 20230207
  6. TORIPALIMAB [Suspect]
     Active Substance: TORIPALIMAB
     Dosage: 240 MG, Q3WEEKS
     Route: 041
     Dates: start: 20230301, end: 20230301
  7. TORIPALIMAB [Suspect]
     Active Substance: TORIPALIMAB
     Dosage: 240 MG, Q3WEEKS
     Route: 041
     Dates: start: 20230322, end: 20230322
  8. TORIPALIMAB [Suspect]
     Active Substance: TORIPALIMAB
     Dosage: 240 MG, Q3WEEKS
     Route: 041
     Dates: start: 20230509, end: 20231017
  9. LUCITANIB [Suspect]
     Active Substance: LUCITANIB
     Indication: Endometrial cancer
     Dosage: 10 MG, QD
     Route: 048
     Dates: start: 20220318, end: 20220913
  10. LUCITANIB [Suspect]
     Active Substance: LUCITANIB
     Dosage: 10 MG, QD
     Route: 048
     Dates: start: 20220921, end: 20221011
  11. LUCITANIB [Suspect]
     Active Substance: LUCITANIB
     Dosage: 7.5 MG, QD
     Route: 048
     Dates: start: 20221013, end: 20221223
  12. LUCITANIB [Suspect]
     Active Substance: LUCITANIB
     Dosage: 7.5 MG, QD
     Route: 048
     Dates: start: 20230115, end: 20230520
  13. LUCITANIB [Suspect]
     Active Substance: LUCITANIB
     Dosage: 10 MG, QD
     Route: 048
     Dates: start: 20230524, end: 20230816
  14. LUCITANIB [Suspect]
     Active Substance: LUCITANIB
     Dosage: 10 MG, QD
     Route: 048
     Dates: start: 20230825, end: 20231023
  15. LUCITANIB [Suspect]
     Active Substance: LUCITANIB
     Dosage: 7.5 MG, QD
     Route: 048
     Dates: start: 20231101
  16. AMLODIPINE BESYLATE [Concomitant]
     Active Substance: AMLODIPINE BESYLATE
     Indication: Hypertension
  17. METOPROLOL TARTRATE [Concomitant]
     Active Substance: METOPROLOL TARTRATE
     Indication: Hypertension
  18. IRBESARTAN [Concomitant]
     Active Substance: IRBESARTAN
     Indication: Hypertension
     Dosage: UNK
     Dates: start: 202209, end: 20220926
  19. IRBESARTAN [Concomitant]
     Active Substance: IRBESARTAN
     Indication: Hypertension
  20. GLYCYRRHIZA URALENSIS TOTAL FLAVONOID EXTRACT [Concomitant]
     Indication: Gastric ulcer
  21. RABEPRAZOLE [Concomitant]
     Active Substance: RABEPRAZOLE
     Indication: Gastric ulcer
  22. ILAPRAZOLE [Concomitant]
     Active Substance: ILAPRAZOLE
     Indication: Gastric ulcer
  23. IBUPROFEN [Concomitant]
     Active Substance: IBUPROFEN
     Indication: Headache
     Dosage: UNK
     Dates: start: 202209, end: 20220926
  24. DEXAMETHASONE ACETATE [Concomitant]
     Active Substance: DEXAMETHASONE ACETATE
     Indication: Dexamethasone suppression test
     Dosage: UNK
     Dates: start: 202209, end: 202209
  25. POTASSIUM CHLORIDE [Concomitant]
     Active Substance: POTASSIUM CHLORIDE
     Indication: Nutritional supplementation
     Dosage: UNK
     Dates: start: 202209, end: 202209
  26. POTASSIUM CHLORIDE [Concomitant]
     Active Substance: POTASSIUM CHLORIDE
     Indication: Supplementation therapy
  27. DEXTROSE\SODIUM CHLORIDE [Concomitant]
     Active Substance: DEXTROSE\SODIUM CHLORIDE
     Indication: Nutritional supplementation
     Dosage: UNK
     Dates: start: 202209, end: 202209
  28. DEXTROSE\SODIUM CHLORIDE [Concomitant]
     Active Substance: DEXTROSE\SODIUM CHLORIDE
     Indication: Supplementation therapy
  29. ALENDRONATE SODIUM [Concomitant]
     Active Substance: ALENDRONATE SODIUM
     Indication: Osteoporosis
     Dosage: UNK
     Dates: start: 202209, end: 20220926
  30. CALCIUM CARBONATE\CHOLECALCIFEROL [Concomitant]
     Active Substance: CALCIUM CARBONATE\CHOLECALCIFEROL
     Indication: Osteoporosis
     Dosage: UNK
     Dates: start: 202209, end: 20220926
  31. VITAMIN D2 [Concomitant]
     Active Substance: ERGOCALCIFEROL
     Indication: Vitamin D deficiency
     Dosage: UNK
     Dates: start: 202209, end: 20220926
  32. ATORVASTATIN CALCIUM [Concomitant]
     Active Substance: ATORVASTATIN CALCIUM
     Indication: Low density lipoprotein increased
     Dosage: UNK
     Dates: start: 202209, end: 20221011
  33. AN WEI YANG JIAO NANG [Concomitant]
     Indication: Gastric ulcer

REACTIONS (1)
  - Fulminant type 1 diabetes mellitus [Recovering/Resolving]

NARRATIVE: CASE EVENT DATE: 20220919
